FAERS Safety Report 11628580 (Version 1)
Quarter: 2015Q4

REPORT INFORMATION
  Report Type: Report from Study
  Country: US (occurrence: US)
  Receive Date: 20151014
  Receipt Date: 20151014
  Transmission Date: 20160304
  Serious: Yes (Hospitalization)
  Sender: FDA-Public Use
  Company Number: US-BIOGENIDEC-2015BI137003

PATIENT
  Age: 52 Year
  Sex: Male

DRUGS (5)
  1. MICARDIS HCT [Concomitant]
     Active Substance: HYDROCHLOROTHIAZIDE\TELMISARTAN
  2. GLYBURIDE. [Concomitant]
     Active Substance: GLYBURIDE
  3. FISH OIL [Concomitant]
     Active Substance: FISH OIL
  4. LIPITOR [Concomitant]
     Active Substance: ATORVASTATIN CALCIUM
  5. AVONEX [Suspect]
     Active Substance: INTERFERON BETA-1A
     Indication: PRODUCT USED FOR UNKNOWN INDICATION
     Route: 030
     Dates: start: 20110216

REACTIONS (1)
  - Coma [Unknown]

NARRATIVE: CASE EVENT DATE: 20150901
